FAERS Safety Report 11941546 (Version 4)
Quarter: 2016Q1

REPORT INFORMATION
  Report Type: Spontaneous
  Country: US (occurrence: US)
  Receive Date: 20160122
  Receipt Date: 20160222
  Transmission Date: 20160526
  Serious: Yes (Hospitalization, Other)
  Sender: FDA-Public Use
  Company Number: US-BRISTOL-MYERS SQUIBB COMPANY-BMS-2016-002404

PATIENT
  Sex: Male

DRUGS (1)
  1. KENALOG-40 [Suspect]
     Active Substance: TRIAMCINOLONE ACETONIDE
     Indication: PRODUCT USED FOR UNKNOWN INDICATION
     Dosage: 1 ML, UNK
     Route: 065
     Dates: start: 20151111

REACTIONS (6)
  - Mitral valve replacement [Unknown]
  - Hospitalisation [Unknown]
  - Chills [Unknown]
  - Transmission of an infectious agent via product [Unknown]
  - Pyrexia [Unknown]
  - Coagulopathy [Unknown]

NARRATIVE: CASE EVENT DATE: 20160104
